FAERS Safety Report 6575714-8 (Version None)
Quarter: 2010Q1

REPORT INFORMATION
  Report Type: 
  Country: None (occurrence: None)
  Receive Date: 20100208
  Receipt Date: 20100208
  Transmission Date: 20100710
  Serious: Yes (Other)
  Sender: FDA-Public Use
  Company Number: None

PATIENT
  Age: 40 Year
  Weight: 77.1115 kg

DRUGS (5)
  1. VALACYCLOVIR [Suspect]
     Indication: ANTIVIRAL TREATMENT
     Dosage: 500MG ONCE DAILY PO EARLY JAN - JAN 26
     Route: 048
     Dates: start: 20100101, end: 20100126
  2. VALACYCLOVIR [Suspect]
     Indication: GENITAL HERPES
     Dosage: 500MG ONCE DAILY PO EARLY JAN - JAN 26
     Route: 048
     Dates: start: 20100101, end: 20100126
  3. GABAPENTIN [Concomitant]
  4. CITALOPRAM [Concomitant]
  5. BUPROPION HCL [Concomitant]

REACTIONS (2)
  - HERPES SIMPLEX [None]
  - PRODUCT SUBSTITUTION ISSUE [None]
